FAERS Safety Report 12138204 (Version 3)
Quarter: 2016Q1

REPORT INFORMATION
  Report Type: Spontaneous
  Country: DE (occurrence: DE)
  Receive Date: 20160302
  Receipt Date: 20160329
  Transmission Date: 20160526
  Serious: Yes (Hospitalization, Disabling, Other)
  Sender: FDA-Public Use
  Company Number: DE-BAYER-2015-476908

PATIENT
  Age: 25 Year
  Sex: Female
  Weight: 78.5 kg

DRUGS (2)
  1. YASMIN [Suspect]
     Active Substance: DROSPIRENONE\ETHINYL ESTRADIOL
     Indication: NONINFECTIVE OOPHORITIS
  2. YASMIN [Suspect]
     Active Substance: DROSPIRENONE\ETHINYL ESTRADIOL
     Indication: ORAL CONTRACEPTION
     Dosage: 1 DF, QD
     Route: 048
     Dates: start: 200608

REACTIONS (16)
  - Vomiting [None]
  - Performance status decreased [Recovered/Resolved with Sequelae]
  - Noninfective oophoritis [None]
  - Gastric disorder [None]
  - General physical health deterioration [None]
  - Off label use [None]
  - Bedridden [Recovered/Resolved with Sequelae]
  - Embolism [None]
  - Thrombosis prophylaxis [None]
  - Pain [Recovered/Resolved with Sequelae]
  - Pyrexia [None]
  - Pain in extremity [None]
  - Malaise [Recovered/Resolved with Sequelae]
  - Back pain [None]
  - Peripheral swelling [Recovered/Resolved with Sequelae]
  - Pelvic venous thrombosis [Recovered/Resolved with Sequelae]

NARRATIVE: CASE EVENT DATE: 201202
